FAERS Safety Report 10668224 (Version 1)
Quarter: 2014Q4

REPORT INFORMATION
  Report Type: Spontaneous
  Country: US (occurrence: US)
  Receive Date: 20141222
  Receipt Date: 20141222
  Transmission Date: 20150529
  Serious: Yes (Other)
  Sender: FDA-Public Use
  Company Number: US-IPSEN BIOPHARMACEUTICALS, INC.-2014-6943

PATIENT
  Age: 49 Year
  Sex: Male

DRUGS (3)
  1. SOMATULINE DEPOT [Suspect]
     Active Substance: LANREOTIDE ACETATE
     Indication: PRODUCT USE ISSUE
  2. SOMATULINE DEPOT [Suspect]
     Active Substance: LANREOTIDE ACETATE
     Indication: HYPOTHALAMO-PITUITARY DISORDER
     Dosage: 60 MG
     Route: 065
     Dates: start: 20090305, end: 201411
  3. SOMAVERT [Concomitant]
     Active Substance: PEGVISOMANT
     Indication: PRODUCT USED FOR UNKNOWN INDICATION
     Route: 065

REACTIONS (2)
  - Surgery [Unknown]
  - Off label use [None]

NARRATIVE: CASE EVENT DATE: 201411
